FAERS Safety Report 8801912 (Version 1)
Quarter: 2012Q4

REPORT INFORMATION
  Report Type: Report from Study
  Country: US (occurrence: US)
  Receive Date: 20120921
  Receipt Date: 20120921
  Transmission Date: 20130627
  Serious: Yes (Other)
  Sender: FDA-Public Use
  Company Number: US-ROCHE-1120490

PATIENT
  Age: 51 Year
  Sex: Male

DRUGS (3)
  1. COPEGUS [Suspect]
     Indication: HEPATITIS C
     Route: 065
  2. BMS-986094 [Suspect]
     Indication: HEPATITIS C
     Route: 065
     Dates: end: 20120801
  3. DACLATASVIR [Suspect]
     Indication: HEPATITIS C
     Route: 065
     Dates: end: 20120801

REACTIONS (1)
  - Syncope [Unknown]
